FAERS Safety Report 10068779 (Version 1)
Quarter: 2014Q2

REPORT INFORMATION
  Report Type: Spontaneous
  Country: US (occurrence: US)
  Receive Date: 20140409
  Receipt Date: 20140409
  Transmission Date: 20141212
  Serious: No
  Sender: FDA-Public Use
  Company Number: US-MYLANLABS-2014S1003759

PATIENT
  Sex: Female

DRUGS (1)
  1. VALSARTAN AND HYDROCHLOROTHIAZIDE TABLETS [Suspect]
     Dates: start: 201303

REACTIONS (1)
  - Blood pressure increased [Recovered/Resolved]
